FAERS Safety Report 11905645 (Version 1)
Quarter: 2016Q1

REPORT INFORMATION
  Report Type: Spontaneous
  Country: GB (occurrence: GB)
  Receive Date: 20160110
  Receipt Date: 20160110
  Transmission Date: 20160526
  Serious: Yes (Hospitalization)
  Sender: FDA-Public Use
  Company Number: GB-DEXPHARM-20160002

PATIENT
  Age: 69 Year
  Sex: Female

DRUGS (15)
  1. INDAPAMIDE. [Suspect]
     Active Substance: INDAPAMIDE
     Dates: end: 20151218
  2. SERTRALINE [Interacting]
     Active Substance: SERTRALINE HYDROCHLORIDE
     Indication: DEPRESSION
     Route: 048
     Dates: start: 20151123, end: 20151218
  3. FELODIPINE. [Concomitant]
     Active Substance: FELODIPINE
  4. FERROUS SULFATE [Concomitant]
     Active Substance: FERROUS SULFATE\FERROUS SULFATE, DRIED
  5. ASPIRIN. [Concomitant]
     Active Substance: ASPIRIN
  6. LEVOTHYROXINE. [Concomitant]
     Active Substance: LEVOTHYROXINE
  7. METFORMIN [Concomitant]
     Active Substance: METFORMIN HYDROCHLORIDE
  8. LOSARTAN. [Interacting]
     Active Substance: LOSARTAN
     Dates: end: 20151218
  9. AMITRIPTYLINE [Concomitant]
     Active Substance: AMITRIPTYLINE
  10. OMEPRAZOLE. [Interacting]
     Active Substance: OMEPRAZOLE
     Dates: end: 20151218
  11. BETAHISTINE [Concomitant]
     Active Substance: BETAHISTINE
  12. ROSUVASTATIN [Concomitant]
     Active Substance: ROSUVASTATIN
  13. ADCAL-D3 [Concomitant]
     Active Substance: CALCIUM CARBONATE\CHOLECALCIFEROL
  14. ATENOLOL. [Concomitant]
     Active Substance: ATENOLOL
  15. GLICLAZIDE [Concomitant]
     Active Substance: GLICLAZIDE

REACTIONS (1)
  - Drug interaction [Unknown]
